FAERS Safety Report 7793016-9 (Version None)
Quarter: 2011Q4

REPORT INFORMATION
  Report Type: 
  Country: None (occurrence: None)
  Receive Date: 20111003
  Receipt Date: 20110923
  Transmission Date: 20120403
  Serious: Yes (Other)
  Sender: FDA-Public Use
  Company Number: US-ASTRAZENECA-2011SE57626

PATIENT
  Age: 51 Year
  Sex: Female

DRUGS (2)
  1. OMEPRAZOLE [Suspect]
     Route: 048
  2. NEXIUM [Suspect]
     Route: 048

REACTIONS (6)
  - CHEST DISCOMFORT [None]
  - CHOKING SENSATION [None]
  - DRUG INEFFECTIVE [None]
  - EATING DISORDER [None]
  - WEIGHT DECREASED [None]
  - NEOPLASM [None]
